FAERS Safety Report 8965733 (Version 1)
Quarter: 2012Q4

REPORT INFORMATION
  Report Type: Spontaneous
  Country: GB (occurrence: None)
  Receive Date: 20121204
  Receipt Date: 20121204
  Transmission Date: 20130627
  Serious: No
  Sender: FDA-Public Use
  Company Number: DSA_61190_2012

PATIENT
  Age: 66 Year
  Sex: Male

DRUGS (15)
  1. FLUOROURACIL [Suspect]
     Indication: COLORECTAL CANCER METASTATIC
     Dosage: 1x/2 weeks
     Route: 040
     Dates: start: 20121025, end: 20121025
  2. FLUOROURACIL [Suspect]
     Indication: COLORECTAL CANCER METASTATIC
     Dosage: 1x/2 weeks)
     Route: 041
     Dates: start: 20121025, end: 20121025
  3. FLUOROURACIL [Suspect]
     Indication: COLORECTAL CANCER METASTATIC
     Dosage: 1x/2 weeks)
     Route: 040
     Dates: start: 20121107, end: 20121107
  4. FLUOROURACIL [Suspect]
     Indication: COLORECTAL CANCER METASTATIC
     Dosage: 1x/2 weeks)
     Route: 041
     Dates: start: 20121107, end: 20121107
  5. AFLIBERCEPT [Suspect]
     Indication: COLORECTAL CANCER METASTATIC
     Dosage: 1x/2 weeks (not otherwise specified))
     Route: 042
     Dates: start: 20121025, end: 20121025
  6. AFLIBERCEPT [Suspect]
     Indication: COLORECTAL CANCER METASTATIC
     Dosage: 1x/2 weeks (not otherwise specified))
     Route: 042
     Dates: start: 20121107, end: 20121107
  7. IRINOTECAN [Suspect]
     Indication: COLORECTAL CANCER METASTATIC
     Dosage: 1x/2 weeks (not otherwise specified))
     Route: 042
     Dates: start: 20121025, end: 20121025
  8. IRINOTECAN [Suspect]
     Indication: COLORECTAL CANCER METASTATIC
     Dosage: 1x/2 weeks (not otherwise specified))
     Route: 042
     Dates: start: 20121107, end: 20121107
  9. LEUCOVORIN [Suspect]
     Indication: COLORECTAL CANCER METASTATIC
     Dosage: (DF)   (not otherwise specified))
     Route: 042
     Dates: start: 20121025, end: 20121025
  10. LEUCOVORIN [Suspect]
     Indication: COLORECTAL CANCER METASTATIC
     Dosage: (DF)   (not otherwise specified))
     Route: 042
     Dates: start: 20121107, end: 20121107
  11. LORTADINE [Concomitant]
  12. QVAR [Concomitant]
  13. LISINOPRIL [Concomitant]
  14. DEXAMETHASONE [Concomitant]
  15. MORPHINE SULFATE [Concomitant]

REACTIONS (1)
  - Diarrhoea [None]
